FAERS Safety Report 14483184 (Version 2)
Quarter: 2018Q1

REPORT INFORMATION
  Report Type: Spontaneous
  Country: US (occurrence: US)
  Receive Date: 20180204
  Receipt Date: 20180315
  Transmission Date: 20180509
  Serious: Yes (Hospitalization)
  Sender: FDA-Public Use
  Company Number: US-JNJFOC-20180127792

PATIENT
  Age: 58 Year
  Sex: Female
  Weight: 127.46 kg

DRUGS (1)
  1. INVOKANA [Suspect]
     Active Substance: CANAGLIFLOZIN
     Indication: TYPE 2 DIABETES MELLITUS
     Dosage: 100 (UNITS NOT SPECIFIED)
     Route: 065
     Dates: start: 20170501, end: 20171005

REACTIONS (2)
  - Pancreatitis [Recovered/Resolved]
  - Gastritis [Unknown]

NARRATIVE: CASE EVENT DATE: 20170925
